FAERS Safety Report 14166025 (Version 6)
Quarter: 2022Q4

REPORT INFORMATION
  Report Type: Report from Study
  Country: JP (occurrence: JP)
  Receive Date: 20171107
  Receipt Date: 20221216
  Transmission Date: 20230112
  Serious: Yes (Hospitalization)
  Sender: FDA-Public Use
  Company Number: JP-MYLANLABS-2013S1024256

PATIENT
  Age: 17 Year
  Sex: Male
  Weight: 39.3 kg

DRUGS (49)
  1. CYSTEAMINE [Suspect]
     Active Substance: CYSTEAMINE
     Indication: Cystinosis
     Dosage: 600 MG, QID
     Route: 048
     Dates: start: 20120919
  2. CYSTEAMINE [Suspect]
     Active Substance: CYSTEAMINE
     Dosage: 600 MG, QID
     Route: 048
     Dates: start: 20161008, end: 20170413
  3. CYSTEAMINE [Suspect]
     Active Substance: CYSTEAMINE
     Dosage: 450 MILLIGRAM, BID
     Route: 048
     Dates: start: 20170414, end: 20180124
  4. CYSTEAMINE [Suspect]
     Active Substance: CYSTEAMINE
     Dosage: 600 MILLIGRAM, BID
     Route: 048
     Dates: start: 20170414, end: 20180124
  5. CYSTEAMINE [Suspect]
     Active Substance: CYSTEAMINE
     Dosage: 600 MILLIGRAM, QID, AFTER MEAL AND BEFORE SLEEP
     Route: 048
     Dates: start: 20180125
  6. URALYT [Concomitant]
     Indication: Electrolyte imbalance
     Dosage: 2 G, TID
     Route: 048
     Dates: start: 20110817, end: 20140211
  7. URALYT [Concomitant]
     Dosage: 2 G, TID
     Route: 048
     Dates: start: 20140212, end: 20140212
  8. SODIUM BICARBONATE [Concomitant]
     Active Substance: SODIUM BICARBONATE
     Indication: Acidosis
     Dosage: 1 G,TID
     Route: 048
     Dates: start: 20131022, end: 20140212
  9. SLOW-K [Concomitant]
     Active Substance: POTASSIUM CHLORIDE
     Indication: Electrolyte imbalance
     Dosage: 1200 MILLIGRAM, BID
     Route: 048
     Dates: start: 20131022
  10. SLOW-K [Concomitant]
     Active Substance: POTASSIUM CHLORIDE
     Dosage: 1200 MG, BID
     Route: 048
     Dates: start: 20140203, end: 20140319
  11. SLOW-K [Concomitant]
     Active Substance: POTASSIUM CHLORIDE
     Dosage: 1200 MG, QD
     Route: 048
     Dates: start: 20140320
  12. ALFA D [Concomitant]
     Indication: Vitamin D decreased
     Dosage: .5 ?G,QD
     Route: 048
     Dates: start: 20130922, end: 20140212
  13. CALTAN [Concomitant]
     Active Substance: CALCIUM CARBONATE
     Indication: Product used for unknown indication
     Dosage: 500 MILLIGRAM, QD
     Route: 048
     Dates: start: 20131022, end: 20140212
  14. CALTAN [Concomitant]
     Active Substance: CALCIUM CARBONATE
     Dosage: 500 MILLIGRAM, TID
     Route: 048
     Dates: start: 20140215, end: 20140224
  15. CALTAN [Concomitant]
     Active Substance: CALCIUM CARBONATE
     Dosage: 500 MILLIGRAM, BID
     Route: 048
     Dates: start: 20140225, end: 20140226
  16. CALTAN [Concomitant]
     Active Substance: CALCIUM CARBONATE
     Dosage: 500 MILLIGRAM, BID
     Route: 048
     Dates: start: 20140227, end: 20140228
  17. MIRCERA [Concomitant]
     Active Substance: METHOXY POLYETHYLENE GLYCOL-EPOETIN BETA
     Indication: Anaemia
     Dosage: 50 MICROGRAM, MONTHLY
     Route: 058
     Dates: start: 20131021, end: 20140127
  18. MIRCERA [Concomitant]
     Active Substance: METHOXY POLYETHYLENE GLYCOL-EPOETIN BETA
     Dosage: 100 MICROGRAM, TOTAL
     Route: 058
     Dates: start: 20140208, end: 20140208
  19. TACROLIMUS [Concomitant]
     Active Substance: TACROLIMUS
     Indication: Prophylaxis against transplant rejection
     Dosage: 4 MILLIGRAM, QD
     Route: 048
     Dates: start: 20140203, end: 20140204
  20. TACROLIMUS [Concomitant]
     Active Substance: TACROLIMUS
     Dosage: 6 MILLIGRAM, QD
     Route: 048
     Dates: start: 20140205, end: 20140221
  21. TACROLIMUS [Concomitant]
     Active Substance: TACROLIMUS
     Dosage: 7 MILLIGRAM, QD
     Route: 048
     Dates: start: 20140222, end: 20140224
  22. TACROLIMUS [Concomitant]
     Active Substance: TACROLIMUS
     Dosage: 8 MILLIGRAM, QD
     Route: 048
     Dates: start: 20140225, end: 20140702
  23. TACROLIMUS [Concomitant]
     Active Substance: TACROLIMUS
     Dosage: 6 MILLIGRAM, QD
     Route: 048
     Dates: start: 20140703
  24. MEDROL [Concomitant]
     Active Substance: METHYLPREDNISOLONE
     Indication: Prophylaxis against transplant rejection
     Dosage: 4 MILLIGRAM, QD
     Route: 048
     Dates: start: 20140307
  25. MEDROL [Concomitant]
     Active Substance: METHYLPREDNISOLONE
     Dosage: 20 MILLIGRAM, QD
     Route: 048
     Dates: start: 20140203
  26. MEDROL [Concomitant]
     Active Substance: METHYLPREDNISOLONE
     Dosage: 20 MILLIGRAM, QD
     Route: 048
     Dates: start: 20140219, end: 20140221
  27. MEDROL [Concomitant]
     Active Substance: METHYLPREDNISOLONE
     Dosage: 32 MILLIGRAM, QD
     Route: 048
     Dates: start: 20140217, end: 20140218
  28. MEDROL [Concomitant]
     Active Substance: METHYLPREDNISOLONE
     Dosage: 16 MILLIGRAM, QD
     Route: 048
     Dates: start: 20140222, end: 20140224
  29. MEDROL [Concomitant]
     Active Substance: METHYLPREDNISOLONE
     Dosage: 12 MILLIGRAM, QD
     Route: 048
     Dates: start: 20140225, end: 20140227
  30. MEDROL [Concomitant]
     Active Substance: METHYLPREDNISOLONE
     Dosage: 8 MILLIGRAM, QD
     Route: 048
     Dates: start: 20140228, end: 20140306
  31. CELLCEPT [Concomitant]
     Active Substance: MYCOPHENOLATE MOFETIL
     Indication: Prophylaxis against transplant rejection
     Dosage: 1000 MILLIGRAM, QD
     Route: 048
     Dates: start: 20140203, end: 20140212
  32. CELLCEPT [Concomitant]
     Active Substance: MYCOPHENOLATE MOFETIL
     Dosage: 1000 MILLIGRAM, BID
     Route: 048
     Dates: start: 20140213, end: 20140213
  33. CELLCEPT [Concomitant]
     Active Substance: MYCOPHENOLATE MOFETIL
     Dosage: 1000 MILLIGRAM, QD
     Route: 048
     Dates: start: 20140312, end: 20140408
  34. CELLCEPT [Concomitant]
     Active Substance: MYCOPHENOLATE MOFETIL
     Dosage: 2000 MILLIGRAM, QD
     Route: 048
     Dates: start: 20140214, end: 20140228
  35. CELLCEPT [Concomitant]
     Active Substance: MYCOPHENOLATE MOFETIL
     Dosage: 1500 MILLIGRAM, QD
     Route: 048
     Dates: start: 20140301, end: 20140311
  36. CELLCEPT [Concomitant]
     Active Substance: MYCOPHENOLATE MOFETIL
     Dosage: 375 MILLIGRAM, BID
     Route: 048
     Dates: start: 20140409
  37. RABEPRAZOLE SODIUM [Concomitant]
     Active Substance: RABEPRAZOLE SODIUM
     Indication: Prophylaxis against gastrointestinal ulcer
     Dosage: 10 MG,QD
     Route: 048
     Dates: start: 20140203, end: 20140228
  38. BLONANSERIN [Concomitant]
     Active Substance: BLONANSERIN
     Indication: Product used for unknown indication
     Dosage: 4 MG,QD
     Route: 048
     Dates: start: 20140106, end: 20140204
  39. SULFAMETHOXAZOLE\TRIMETHOPRIM [Concomitant]
     Active Substance: SULFAMETHOXAZOLE\TRIMETHOPRIM
     Indication: Product used for unknown indication
     Dosage: 1 DF,QD
     Route: 048
     Dates: start: 20140217
  40. FORSENID /00571901/ [Concomitant]
     Indication: Product used for unknown indication
     Dosage: 24 MG,QD
     Route: 048
     Dates: start: 20140211, end: 20140212
  41. MAGNESIUM CITRATE [Concomitant]
     Active Substance: MAGNESIUM CITRATE
     Indication: Product used for unknown indication
     Dosage: 50 G,QD
     Route: 048
     Dates: start: 20140212, end: 20140212
  42. RINDERON #1 [Concomitant]
     Indication: Product used for unknown indication
     Dosage: 4 MG,UNK
     Route: 041
     Dates: start: 20140206, end: 20140206
  43. DEXTROSE\POTASSIUM CHLORIDE\SODIUM CHLORIDE\SODIUM LACTATE [Concomitant]
     Active Substance: DEXTROSE\POTASSIUM CHLORIDE\SODIUM CHLORIDE\SODIUM LACTATE
     Indication: Product used for unknown indication
     Dosage: 200 ML,UNK
     Route: 041
     Dates: start: 20140206, end: 20140206
  44. PRIMPERAN [Concomitant]
     Active Substance: METOCLOPRAMIDE HYDROCHLORIDE
     Indication: Product used for unknown indication
     Dosage: 10 MG,UNK
     Route: 041
     Dates: start: 20140206, end: 20140206
  45. RITUXAN [Concomitant]
     Active Substance: RITUXIMAB
     Indication: Product used for unknown indication
     Dosage: 200 MG,UNK
     Route: 041
     Dates: start: 20140206, end: 20140206
  46. MPR-1020 [Concomitant]
     Indication: Cystinosis
     Dosage: UNK
     Route: 065
     Dates: start: 20120809
  47. NADIFLOXACIN [Concomitant]
     Active Substance: NADIFLOXACIN
     Indication: Skin infection
     Dosage: UNK
     Route: 061
     Dates: start: 20140708
  48. ELDECALCITOL [Concomitant]
     Active Substance: ELDECALCITOL
     Indication: Product used for unknown indication
     Dosage: 0.75 MICROGRAM, QD
     Route: 048
     Dates: start: 20180523
  49. BONVIVA [Concomitant]
     Active Substance: IBANDRONATE SODIUM
     Indication: Product used for unknown indication
     Dosage: 100 MILLIGRAM, MONTHLY
     Route: 048
     Dates: start: 20180620

REACTIONS (6)
  - Chronic kidney disease [Recovered/Resolved]
  - Feeling abnormal [Recovered/Resolved]
  - Pruritus [Recovered/Resolved]
  - Rash [Recovered/Resolved]
  - Blood creatinine increased [Recovering/Resolving]
  - Abdominal distension [Recovering/Resolving]

NARRATIVE: CASE EVENT DATE: 20140106
